FAERS Safety Report 9017510 (Version 2)
Quarter: 2013Q2

REPORT INFORMATION
  Report Type: Spontaneous
  Country: FR (occurrence: FR)
  Receive Date: 20130117
  Receipt Date: 20130422
  Transmission Date: 20140414
  Serious: Yes (Life-Threatening)
  Sender: FDA-Public Use
  Company Number: FR-NICOBRDEVP-2013-00309

PATIENT
  Sex: Female

DRUGS (3)
  1. PREDNISOLONE [Suspect]
     Indication: PRODUCT USED FOR UNKNOWN INDICATION
     Dosage: 1 TABLET BID
     Route: 048
  2. SOTALOL [Concomitant]
     Indication: PRODUCT USED FOR UNKNOWN INDICATION
     Route: 065
  3. OLMETEC [Concomitant]
     Indication: PRODUCT USED FOR UNKNOWN INDICATION
     Route: 065

REACTIONS (6)
  - Lung disorder [Recovered/Resolved]
  - Diffuse alveolar damage [Recovered/Resolved]
  - Dyspnoea [Recovered/Resolved]
  - Foaming at mouth [Recovered/Resolved]
  - Blood urine present [Recovered/Resolved]
  - Protein urine [Recovered/Resolved]
